FAERS Safety Report 9169741 (Version 7)
Quarter: 2013Q4

REPORT INFORMATION
  Report Type: Spontaneous
  Country: US (occurrence: US)
  Receive Date: 20130318
  Receipt Date: 20131021
  Transmission Date: 20140711
  Serious: Yes (Hospitalization)
  Sender: FDA-Public Use
  Company Number: US-009507513-1303USA005740

PATIENT
  Age: 59 Year
  Sex: Male

DRUGS (6)
  1. VICTRELIS [Suspect]
     Indication: HEPATITIS C
     Dosage: 800 MG, 3 TIMES A DAY
     Route: 048
     Dates: start: 20130307, end: 2013
  2. VICTRELIS [Suspect]
     Dosage: 600, 3 TIMES A DAY
     Route: 048
     Dates: start: 2013
  3. PEG-INTRON [Suspect]
     Indication: HEPATITIS C
     Dosage: 120 MICROGRAM, UNK
     Route: 058
     Dates: start: 201301
  4. PEG-INTRON [Suspect]
     Indication: HEPATITIS C
     Dosage: 120 MICROGRAM, ONCE A WEEK
     Route: 058
     Dates: start: 20130204
  5. RIBASPHERE [Suspect]
     Indication: HEPATITIS C
     Dosage: 200 MG 1 PILL TWICE DAILY
     Route: 048
     Dates: start: 20130205
  6. SUMATRIPTAN SUCCINATE [Concomitant]
     Route: 048

REACTIONS (28)
  - White blood cell count decreased [Unknown]
  - Hypotension [Unknown]
  - Platelet count decreased [Unknown]
  - Haemoptysis [Unknown]
  - Migraine [Not Recovered/Not Resolved]
  - Tongue disorder [Unknown]
  - Oropharyngeal pain [Unknown]
  - Migraine [Unknown]
  - White blood cell count decreased [Not Recovered/Not Resolved]
  - Haematemesis [Unknown]
  - Dyspnoea [Not Recovered/Not Resolved]
  - Influenza like illness [Unknown]
  - Chills [Unknown]
  - Headache [Unknown]
  - Nausea [Recovered/Resolved]
  - Stomatitis [Unknown]
  - Swelling face [Unknown]
  - Decreased appetite [Unknown]
  - Dyspnoea [Unknown]
  - Nausea [Unknown]
  - Alopecia [Not Recovered/Not Resolved]
  - Fatigue [Not Recovered/Not Resolved]
  - Rash [Not Recovered/Not Resolved]
  - Depression [Not Recovered/Not Resolved]
  - Alopecia [Unknown]
  - Dysgeusia [Unknown]
  - Asthenia [Unknown]
  - Dry skin [Unknown]
